FAERS Safety Report 13058300 (Version 2)
Quarter: 2017Q1

REPORT INFORMATION
  Report Type: Spontaneous
  Country: US (occurrence: US)
  Receive Date: 20161223
  Receipt Date: 20170105
  Transmission Date: 20170428
  Serious: Yes (Life-Threatening, Hospitalization, Other)
  Sender: FDA-Public Use
  Company Number: US-WEST-WARD PHARMACEUTICALS CORP.-US-H14001-16-02919

PATIENT
  Age: 71 Year
  Sex: Male

DRUGS (1)
  1. ATROPINE. [Suspect]
     Active Substance: ATROPINE
     Indication: IRIDOCYCLITIS
     Route: 061
     Dates: start: 201408, end: 201410

REACTIONS (2)
  - Urinary retention [Recovered/Resolved]
  - Urosepsis [Unknown]

NARRATIVE: CASE EVENT DATE: 201409
